FAERS Safety Report 18427885 (Version 1)
Quarter: 2020Q4

REPORT INFORMATION
  Report Type: Spontaneous
  Country: US (occurrence: US)
  Receive Date: 20201026
  Receipt Date: 20201026
  Transmission Date: 20210114
  Serious: Yes (Hospitalization, Other)
  Sender: FDA-Public Use
  Company Number: US-SA-2020SA294647

PATIENT

DRUGS (1)
  1. ENOXAPARIN SODIUM - WINTHROP [Suspect]
     Active Substance: ENOXAPARIN SODIUM
     Indication: DEEP VEIN THROMBOSIS
     Dosage: DRUG STRUCTURE DOSAGE 48-50 MG
     Route: 065
     Dates: start: 20201002

REACTIONS (4)
  - Pulmonary congestion [Unknown]
  - Pyrexia [Unknown]
  - Intentional product use issue [Unknown]
  - Epistaxis [Unknown]
